FAERS Safety Report 11111181 (Version 1)
Quarter: 2015Q2

REPORT INFORMATION
  Report Type: Spontaneous
  Country: CA (occurrence: CA)
  Receive Date: 20150513
  Receipt Date: 20150513
  Transmission Date: 20150821
  Serious: Yes (Other)
  Sender: FDA-Public Use
  Company Number: CA-BAXTER-2015BAX024861

PATIENT
  Sex: Male

DRUGS (4)
  1. 5% DEXTROSE INJECTION [Suspect]
     Active Substance: DEXTROSE
     Indication: PARENTERAL NUTRITION
     Route: 051
  2. CLINOLEIC 20% [Suspect]
     Active Substance: OLIVE OIL\SOYBEAN OIL
     Indication: PARENTERAL NUTRITION
     Route: 051
  3. TRAVASOL 10% [Suspect]
     Active Substance: ALANINE\ARGININE\GLYCINE\HISTIDINE\ISOLEUCINE\LEUCINE\LYSINE HYDROCHLORIDE\METHIONINE\PHENYLALANINE\PROLINE\SERINE\THREONINE\TRYPTOPHAN\TYROSINE\VALINE
     Indication: PARENTERAL NUTRITION
     Route: 051
  4. ELECTROLYTES [Suspect]
     Active Substance: ELECTROLYTES NOS
     Indication: PARENTERAL NUTRITION
     Route: 051

REACTIONS (3)
  - Drug dose omission [Unknown]
  - No adverse event [Recovered/Resolved]
  - Product contamination physical [Unknown]
